FAERS Safety Report 8828197 (Version 2)
Quarter: 2012Q4

REPORT INFORMATION
  Report Type: 
  Country: TH (occurrence: TH)
  Receive Date: 20121008
  Receipt Date: 20121207
  Transmission Date: 20130627
  Serious: Yes (Death, Other)
  Sender: FDA-Public Use
  Company Number: PHHY2012TH085803

PATIENT
  Age: 46 Year
  Sex: Male

DRUGS (2)
  1. GLIVEC [Suspect]
     Indication: GASTROINTESTINAL STROMAL TUMOUR
     Dosage: 400 mg, UNK
     Route: 048
  2. GLIVEC [Suspect]
     Dosage: 800 mg, UNK
     Route: 048

REACTIONS (2)
  - Death [Fatal]
  - Obstructive uropathy [Unknown]
